FAERS Safety Report 6927826-4 (Version None)
Quarter: 2010Q3

REPORT INFORMATION
  Report Type: 
  Country: None (occurrence: None)
  Receive Date: 20100817
  Receipt Date: 20100802
  Transmission Date: 20110219
  Serious: Yes (Hospitalization)
  Sender: FDA-Public Use
  Company Number: US-SANOFI-AVENTIS-2010SA045898

PATIENT
  Age: 70 Year
  Sex: Male
  Weight: 81.64 kg

DRUGS (5)
  1. LOVENOX [Suspect]
     Route: 058
     Dates: start: 20100101
  2. LOVENOX [Suspect]
     Route: 058
     Dates: start: 20100601, end: 20100730
  3. LOVENOX [Suspect]
     Route: 058
     Dates: start: 20100803
  4. ANTINEOPLASTIC AGENTS [Concomitant]
  5. ALL OTHER THERAPEUTIC PRODUCTS [Concomitant]
     Indication: VERTIGO

REACTIONS (8)
  - ASTHENIA [None]
  - CONFUSIONAL STATE [None]
  - DECREASED APPETITE [None]
  - DIZZINESS [None]
  - LETHARGY [None]
  - NAUSEA [None]
  - VERTIGO [None]
  - WEIGHT DECREASED [None]
